FAERS Safety Report 10938909 (Version 2)
Quarter: 2015Q2

REPORT INFORMATION
  Report Type: Spontaneous
  Country: US (occurrence: US)
  Receive Date: 20150321
  Receipt Date: 20150525
  Transmission Date: 20150821
  Serious: Yes (Other)
  Sender: FDA-Public Use
  Company Number: US-JNJFOC-20140401813

PATIENT
  Age: 7 Year
  Sex: Female

DRUGS (11)
  1. FELBAMATE. [Suspect]
     Active Substance: FELBAMATE
     Indication: SEIZURE
     Route: 065
  2. LAMOTRIGINE. [Suspect]
     Active Substance: LAMOTRIGINE
     Indication: SEIZURE
     Route: 065
  3. VIGABATRIN [Suspect]
     Active Substance: VIGABATRIN
     Indication: SEIZURE
     Route: 065
  4. LEVETIRACETAM. [Suspect]
     Active Substance: LEVETIRACETAM
     Indication: SEIZURE
     Route: 065
  5. PHENOBARBITAL. [Suspect]
     Active Substance: PHENOBARBITAL
     Indication: SEIZURE
     Route: 065
  6. TOPIRAMATE. [Suspect]
     Active Substance: TOPIRAMATE
     Indication: SEIZURE
     Route: 048
  7. CLOBAZAM [Suspect]
     Active Substance: CLOBAZAM
     Indication: SEIZURE
     Route: 065
  8. CLONAZEPAM. [Suspect]
     Active Substance: CLONAZEPAM
     Indication: SEIZURE
     Route: 065
  9. VALPROIC ACID. [Suspect]
     Active Substance: VALPROIC ACID
     Indication: SEIZURE
     Route: 065
  10. RUFINAMIDE [Suspect]
     Active Substance: RUFINAMIDE
     Indication: SEIZURE
     Route: 065
  11. ZONISAMIDE. [Suspect]
     Active Substance: ZONISAMIDE
     Indication: SEIZURE
     Route: 065

REACTIONS (1)
  - Seizure [Not Recovered/Not Resolved]
